FAERS Safety Report 6478807-9 (Version None)
Quarter: 2009Q4

REPORT INFORMATION
  Report Type: 
  Country: None (occurrence: None)
  Receive Date: 20091207
  Receipt Date: 20090204
  Transmission Date: 20100525
  Serious: No
  Sender: FDA-Public Use
  Company Number: US-AMGEN-KDL332188

PATIENT
  Sex: Male

DRUGS (1)
  1. ENBREL [Suspect]
     Indication: RHEUMATOID ARTHRITIS
     Route: 058
     Dates: start: 20070214

REACTIONS (5)
  - GASTROENTERITIS VIRAL [None]
  - INTERVERTEBRAL DISC DEGENERATION [None]
  - MUMPS [None]
  - RASH PUSTULAR [None]
  - URTICARIA [None]
